FAERS Safety Report 18533482 (Version 1)
Quarter: 2020Q4

REPORT INFORMATION
  Report Type: Spontaneous
  Country: FR (occurrence: FR)
  Receive Date: 20201123
  Receipt Date: 20201123
  Transmission Date: 20210114
  Serious: Yes (Other)
  Sender: FDA-Public Use
  Company Number: FR-TEVA-2019-FR-1162788

PATIENT
  Age: 31 Year
  Sex: Female
  Weight: 66 kg

DRUGS (10)
  1. LANSOPRAZOLE. [Concomitant]
     Active Substance: LANSOPRAZOLE
  2. ENDOXAN [Suspect]
     Active Substance: CYCLOPHOSPHAMIDE
     Indication: EWING^S SARCOMA
     Dosage: 1200 MG/M2, OR 2060 MG
     Route: 041
     Dates: start: 20191113, end: 20191113
  3. LOVENOX [Concomitant]
     Active Substance: ENOXAPARIN SODIUM
  4. APREPITANT. [Concomitant]
     Active Substance: APREPITANT
  5. DOXORUBICINE TEVA [Suspect]
     Active Substance: DOXORUBICIN
     Indication: EWING^S SARCOMA
     Dosage: 37.5MG/M2, I.E. 64 MG ON D1 AND 64 MG ON D2 (TOTAL DOSE PER CYCLE = 128 MG)
     Route: 041
     Dates: start: 20191113, end: 20191114
  6. DECAPEPTYL [Concomitant]
  7. UTERAN 10 MG, COMPRIME [Concomitant]
  8. VINCRISTINE (SULFATE DE) [Concomitant]
     Active Substance: VINCRISTINE SULFATE
  9. PREDNISOLONE. [Concomitant]
     Active Substance: PREDNISOLONE
  10. PARACETAMOL [Concomitant]
     Active Substance: ACETAMINOPHEN

REACTIONS (1)
  - Hepatocellular injury [Recovered/Resolved]

NARRATIVE: CASE EVENT DATE: 20191114
